FAERS Safety Report 4584405-4 (Version None)
Quarter: 2005Q1

REPORT INFORMATION
  Report Type: 
  Country: None (occurrence: None)
  Receive Date: 20050125
  Receipt Date: 20041101
  Transmission Date: 20050727
  Serious: Yes (Hospitalization, Other)
  Sender: FDA-Public Use
  Company Number: USA041182950

PATIENT
  Age: 71 Year
  Sex: Female

DRUGS (4)
  1. EVISTA [Suspect]
     Indication: OSTEOPOROSIS
     Dates: start: 19980101, end: 20040101
  2. FORTEO [Suspect]
     Indication: OSTEOPENIA
     Dates: start: 20041025
  3. FOSAMAX [Concomitant]
  4. ACTONEL [Concomitant]

REACTIONS (6)
  - DIZZINESS [None]
  - GASTROINTESTINAL DISORDER [None]
  - MUSCULAR WEAKNESS [None]
  - MYALGIA [None]
  - STOMACH DISCOMFORT [None]
  - THROMBOSIS [None]
